FAERS Safety Report 9018096 (Version 1)
Quarter: 2013Q1

REPORT INFORMATION
  Report Type: Spontaneous
  Country: FR (occurrence: FR)
  Receive Date: 20130117
  Receipt Date: 20130117
  Transmission Date: 20140127
  Serious: Yes (Hospitalization)
  Sender: FDA-Public Use
  Company Number: FR-BAXTER-2013BAX000882

PATIENT
  Age: 51 Year
  Sex: 0

DRUGS (6)
  1. SUPRANE, LIQUIDE POUR INHALATION PAR VAPEUR [Suspect]
     Indication: ANAESTHESIA
     Route: 055
     Dates: start: 20120918, end: 20120918
  2. CELOCURINE [Suspect]
     Indication: PRODUCT USED FOR UNKNOWN INDICATION
     Route: 042
     Dates: start: 20120918, end: 20120918
  3. RAPIFEN [Suspect]
     Indication: PRODUCT USED FOR UNKNOWN INDICATION
     Route: 042
     Dates: start: 20120918, end: 20120918
  4. CEFAZOLINE [Suspect]
     Indication: ANTIBIOTIC PROPHYLAXIS
     Route: 042
     Dates: start: 20120918, end: 20120918
  5. PROPOFOL LIPURO [Concomitant]
     Indication: PRODUCT USED FOR UNKNOWN INDICATION
     Route: 065
     Dates: start: 20120918
  6. SUFENTA [Concomitant]
     Indication: PRODUCT USED FOR UNKNOWN INDICATION
     Route: 065
     Dates: start: 20120918

REACTIONS (1)
  - Anaphylactic shock [Recovered/Resolved]
